FAERS Safety Report 21565941 (Version 2)
Quarter: 2022Q4

REPORT INFORMATION
  Report Type: Spontaneous
  Country: JP (occurrence: JP)
  Receive Date: 20221108
  Receipt Date: 20221206
  Transmission Date: 20230113
  Serious: Yes (Death, Other)
  Sender: FDA-Public Use
  Company Number: JP-AMGEN-JPNSP2022190082

PATIENT

DRUGS (1)
  1. EVENITY [Suspect]
     Active Substance: ROMOSOZUMAB-AQQG
     Indication: Osteoporosis
     Dosage: 210 MILLIGRAM, QMO
     Route: 058

REACTIONS (7)
  - Myocardial infarction [Fatal]
  - Gangrene [Fatal]
  - Sudden cardiac death [Fatal]
  - Lung neoplasm malignant [Fatal]
  - Peripheral arterial occlusive disease [Unknown]
  - Hypocalcaemia [Unknown]
  - Computerised tomogram coronary artery abnormal [Unknown]
